FAERS Safety Report 13564622 (Version 1)
Quarter: 2017Q2

REPORT INFORMATION
  Report Type: Spontaneous
  Country: IR (occurrence: IR)
  Receive Date: 20170519
  Receipt Date: 20170519
  Transmission Date: 20170830
  Serious: Yes (Other)
  Sender: FDA-Public Use
  Company Number: IR-APOPHARMA USA, INC.-2017AP012225

PATIENT
  Age: 18 Month

DRUGS (2)
  1. TOPOTECAN HYDROCHLORIDE. [Suspect]
     Active Substance: TOPOTECAN HYDROCHLORIDE
     Indication: RETINOBLASTOMA
     Dosage: 20 ?G, OTHER
     Route: 050
  2. ALKERAN [Suspect]
     Active Substance: MELPHALAN
     Indication: RETINOBLASTOMA
     Dosage: 40 ?G, OTHER
     Route: 050

REACTIONS (2)
  - Corneal epithelium defect [Recovered/Resolved]
  - Hypotony of eye [Recovered/Resolved]
